FAERS Safety Report 5328494-8 (Version None)
Quarter: 2007Q2

REPORT INFORMATION
  Report Type: 
  Country: None (occurrence: None)
  Receive Date: 20070518
  Receipt Date: 20070516
  Transmission Date: 20071010
  Serious: Yes (Death, Other)
  Sender: FDA-Public Use
  Company Number: DE-AVENTIS-200711310DE

PATIENT
  Sex: Male

DRUGS (1)
  1. TAXOTERE [Suspect]
     Dates: start: 20070101, end: 20070101

REACTIONS (2)
  - MULTI-ORGAN FAILURE [None]
  - SEPSIS [None]
